FAERS Safety Report 5287128-1 (Version None)
Quarter: 2007Q2

REPORT INFORMATION
  Report Type: 
  Country: None (occurrence: None)
  Receive Date: 20070404
  Receipt Date: 20070323
  Transmission Date: 20071010
  Serious: Yes (Other)
  Sender: FDA-Public Use
  Company Number: US-PFIZER INC-2007010126

PATIENT
  Age: 77 Year
  Sex: Female
  Weight: 77.1 kg

DRUGS (5)
  1. CADUET [Suspect]
     Dosage: TEXT:10/20MG
     Dates: start: 20070101, end: 20070101
  2. PREVACID [Concomitant]
  3. LASIX [Concomitant]
  4. ZOLOFT [Concomitant]
  5. ACETYLSALICYLIC ACID SRT [Concomitant]

REACTIONS (3)
  - ADVERSE EVENT [None]
  - BONE PAIN [None]
  - OEDEMA PERIPHERAL [None]
